FAERS Safety Report 5382020-6 (Version None)
Quarter: 2007Q3

REPORT INFORMATION
  Report Type: 
  Country: None (occurrence: None)
  Receive Date: 20070705
  Receipt Date: 20070627
  Transmission Date: 20080115
  Serious: Yes (Hospitalization)
  Sender: FDA-Public Use
  Company Number: 163-20785-07061497

PATIENT
  Age: 68 Year
  Sex: Female

DRUGS (3)
  1. THALOMID [Suspect]
     Indication: MULTIPLE MYELOMA
     Dosage: 100 MG, 1 IN 1 D, ORAL ; 200 MG, 2 IN 1 D, ORAL ; 100 MG,1 IN 1 D, ORAL
     Route: 048
     Dates: start: 20050301, end: 20050519
  2. THALOMID [Suspect]
     Indication: MULTIPLE MYELOMA
     Dosage: 100 MG, 1 IN 1 D, ORAL ; 200 MG, 2 IN 1 D, ORAL ; 100 MG,1 IN 1 D, ORAL
     Route: 048
     Dates: start: 20050606, end: 20051025
  3. THALOMID [Suspect]
     Indication: MULTIPLE MYELOMA
     Dosage: 100 MG, 1 IN 1 D, ORAL ; 200 MG, 2 IN 1 D, ORAL ; 100 MG,1 IN 1 D, ORAL
     Route: 048
     Dates: start: 20051122, end: 20070522

REACTIONS (2)
  - CARDIAC FAILURE CONGESTIVE [None]
  - PULMONARY OEDEMA [None]
